FAERS Safety Report 25943258 (Version 1)
Quarter: 2025Q4

REPORT INFORMATION
  Report Type: Spontaneous
  Country: EU (occurrence: EU)
  Receive Date: 20251021
  Receipt Date: 20251021
  Transmission Date: 20260118
  Serious: Yes (Death)
  Sender: BOEHRINGER INGELHEIM
  Company Number: None

PATIENT
  Age: 92 Year
  Sex: Female
  Weight: 78 kg

DRUGS (3)
  1. LINAGLIPTIN [Suspect]
     Active Substance: LINAGLIPTIN
     Indication: Diabetes mellitus
     Dates: start: 20250808
  2. COLECALCIFEROL CAPSULE    400IE / Brand name not specified [Concomitant]
     Indication: Product used for unknown indication
     Dosage: 400 EENHEDEN
  3. LATANOPROST OOGDRUPPELS 50UG/ML / Brand name not specified [Concomitant]
     Indication: Product used for unknown indication
     Dosage: OOGDRUPPELS, 50 ?G/ML (MICROGRAM PER MILLILITER)

REACTIONS (1)
  - Cerebrovascular accident [Fatal]
